FAERS Safety Report 4317854-X (Version None)
Quarter: 2004Q1

REPORT INFORMATION
  Report Type: 
  Country: None (occurrence: None)
  Receive Date: 20040316
  Receipt Date: 20010426
  Transmission Date: 20041129
  Serious: Yes (Other)
  Sender: FDA-Public Use
  Company Number: 10817724

PATIENT
  Age: 53 Year
  Sex: Female
  Weight: 88 kg

DRUGS (2)
  1. TAXOL [Suspect]
     Indication: BREAST CANCER
     Route: 042
     Dates: start: 20010327, end: 20010327
  2. EPIRUBICIN [Suspect]
     Indication: BREAST CANCER
     Dosage: ADMINISTERED PRIOR TO TAXOL INFUSION.
     Route: 042
     Dates: start: 20010327, end: 20010327

REACTIONS (3)
  - ANGINA PECTORIS [None]
  - FLUSHING [None]
  - HEADACHE [None]
